FAERS Safety Report 6562702-0 (Version None)
Quarter: 2010Q1

REPORT INFORMATION
  Report Type: 
  Country: None (occurrence: None)
  Receive Date: 20100130
  Receipt Date: 20091116
  Transmission Date: 20100710
  Serious: No
  Sender: FDA-Public Use
  Company Number: US-ABBOTT-09P-163-0608932-00

PATIENT
  Sex: Female
  Weight: 121.67 kg

DRUGS (10)
  1. HUMIRA [Suspect]
     Indication: CROHN'S DISEASE
     Route: 058
     Dates: start: 20080101, end: 20090901
  2. HUMIRA [Suspect]
     Indication: PSORIATIC ARTHROPATHY
  3. LYRICA [Concomitant]
     Indication: DRUG USE FOR UNKNOWN INDICATION
  4. PROZAC [Concomitant]
     Indication: DRUG USE FOR UNKNOWN INDICATION
  5. GAMBAPENTIN [Concomitant]
     Indication: DRUG USE FOR UNKNOWN INDICATION
  6. NAPROXEN [Concomitant]
     Indication: DRUG USE FOR UNKNOWN INDICATION
  7. SULFASALAZINE [Concomitant]
     Indication: DRUG USE FOR UNKNOWN INDICATION
  8. CALCIUM [Concomitant]
     Indication: DRUG USE FOR UNKNOWN INDICATION
  9. MULTI-VITAMIN [Concomitant]
     Indication: DRUG USE FOR UNKNOWN INDICATION
  10. TRAMADOL [Concomitant]
     Indication: DRUG USE FOR UNKNOWN INDICATION

REACTIONS (7)
  - CHILLS [None]
  - COUGH [None]
  - CYST [None]
  - DYSPNOEA [None]
  - FATIGUE [None]
  - MOBILITY DECREASED [None]
  - PAIN [None]
